FAERS Safety Report 4498352-X (Version None)
Quarter: 2004Q4

REPORT INFORMATION
  Report Type: 
  Country: None (occurrence: None)
  Receive Date: 20041104
  Receipt Date: 20041019
  Transmission Date: 20050328
  Serious: Yes (Disabling)
  Sender: FDA-Public Use
  Company Number: 9130

PATIENT

DRUGS (2)
  1. METHOTREXATE [Suspect]
     Indication: POLYARTHRITIS
     Dosage: 15 MG WEEKLY
     Route: 030
     Dates: start: 20030901, end: 20031101
  2. ACEMETACIN [Concomitant]

REACTIONS (3)
  - HYPOAESTHESIA [None]
  - PARALYSIS [None]
  - WHITE BLOOD CELL COUNT INCREASED [None]
